FAERS Safety Report 16808274 (Version 5)
Quarter: 2020Q4

REPORT INFORMATION
  Report Type: Spontaneous
  Country: US (occurrence: US)
  Receive Date: 20190916
  Receipt Date: 20201126
  Transmission Date: 20210113
  Serious: Yes (Other)
  Sender: FDA-Public Use
  Company Number: US-GILEAD-2019-0428105

PATIENT
  Age: 31 Year
  Sex: Male
  Weight: 65.76 kg

DRUGS (27)
  1. ATRIPLA [Suspect]
     Active Substance: EFAVIRENZ\EMTRICITABINE\TENOFOVIR DISOPROXIL FUMARATE
     Indication: HIV INFECTION
     Dosage: UNK
     Route: 048
     Dates: start: 201505, end: 201909
  2. PREZCOBIX [Concomitant]
     Active Substance: COBICISTAT\DARUNAVIR ETHANOLATE
  3. SULFAMETHOXAZOLE [Concomitant]
     Active Substance: SULFAMETHOXAZOLE
  4. EDURANT [Concomitant]
     Active Substance: RILPIVIRINE HYDROCHLORIDE
  5. STRIBILD [Suspect]
     Active Substance: COBICISTAT\ELVITEGRAVIR\EMTRICITABINE\TENOFOVIR DISOPROXIL FUMARATE
     Indication: HIV INFECTION
     Dosage: UNK
     Route: 048
     Dates: start: 20140923, end: 20150507
  6. METOPROLOL. [Concomitant]
     Active Substance: METOPROLOL
  7. VALACYCLOVIR [Concomitant]
     Active Substance: VALACYCLOVIR HYDROCHLORIDE
  8. MEGESTROL [Concomitant]
     Active Substance: MEGESTROL
  9. AMLODIPINE BESYLATE. [Concomitant]
     Active Substance: AMLODIPINE BESYLATE
  10. TRUVADA [Suspect]
     Active Substance: EMTRICITABINE\TENOFOVIR DISOPROXIL FUMARATE
     Indication: HIV INFECTION
     Dosage: UNK
     Route: 048
     Dates: start: 20130709, end: 20140317
  11. HYDROCORTISONE. [Concomitant]
     Active Substance: HYDROCORTISONE
  12. ACYCLOVIR [ACICLOVIR] [Concomitant]
     Active Substance: ACYCLOVIR
  13. PENICILLIN [PENICILLIN NOS] [Concomitant]
     Active Substance: PENICILLIN
  14. LAMIVUDINE. [Concomitant]
     Active Substance: LAMIVUDINE
  15. ACETAMINOPHEN. [Concomitant]
     Active Substance: ACETAMINOPHEN
  16. AMOXICILLIN. [Concomitant]
     Active Substance: AMOXICILLIN
  17. BACTRIM [Concomitant]
     Active Substance: SULFAMETHOXAZOLE\TRIMETHOPRIM
  18. CORTISONE [Concomitant]
     Active Substance: CORTISONE
  19. NORVIR [Concomitant]
     Active Substance: RITONAVIR
  20. PREDNISONE. [Concomitant]
     Active Substance: PREDNISONE
  21. CARVEDILOL. [Concomitant]
     Active Substance: CARVEDILOL
  22. REYATAZ [Concomitant]
     Active Substance: ATAZANAVIR SULFATE
  23. TIVICAY [Concomitant]
     Active Substance: DOLUTEGRAVIR SODIUM
  24. TUMS [Concomitant]
     Active Substance: CALCIUM CARBONATE
  25. AZITHROMYCIN ANHYDROUS. [Concomitant]
     Active Substance: AZITHROMYCIN ANHYDROUS
  26. GENVOYA [Concomitant]
     Active Substance: COBICISTAT\ELVITEGRAVIR\EMTRICITABINE\TENOFOVIR ALAFENAMIDE FUMARATE
  27. SERTRALINE HCL [Concomitant]
     Active Substance: SERTRALINE HYDROCHLORIDE

REACTIONS (15)
  - Dyspnoea [Not Recovered/Not Resolved]
  - Renal failure [Unknown]
  - Bone density decreased [Unknown]
  - Emotional distress [Unknown]
  - Depression [Not Recovered/Not Resolved]
  - Economic problem [Unknown]
  - Chronic kidney disease [Unknown]
  - Tooth loss [Not Recovered/Not Resolved]
  - Skin disorder [Not Recovered/Not Resolved]
  - Anhedonia [Unknown]
  - Weight decreased [Unknown]
  - Gait inability [Not Recovered/Not Resolved]
  - End stage renal disease [Not Recovered/Not Resolved]
  - Anxiety [Unknown]
  - Pain [Unknown]

NARRATIVE: CASE EVENT DATE: 201505
